FAERS Safety Report 13888882 (Version 3)
Quarter: 2017Q3

REPORT INFORMATION
  Report Type: Spontaneous
  Country: US (occurrence: US)
  Receive Date: 20170822
  Receipt Date: 20170926
  Transmission Date: 20171127
  Serious: Yes (Hospitalization)
  Sender: FDA-Public Use
  Company Number: US-BRISTOL-MYERS SQUIBB COMPANY-BMS-2017-074171

PATIENT
  Sex: Male
  Weight: 84 kg

DRUGS (1)
  1. YERVOY [Suspect]
     Active Substance: IPILIMUMAB
     Indication: METASTATIC MALIGNANT MELANOMA
     Dosage: 845 MG, UNK, 10MG/KG
     Route: 042
     Dates: start: 20170608

REACTIONS (3)
  - Drug intolerance [Unknown]
  - Fatigue [Unknown]
  - Prescribed overdose [Unknown]
